FAERS Safety Report 6243479-5 (Version None)
Quarter: 2009Q2

REPORT INFORMATION
  Report Type: 
  Country: None (occurrence: None)
  Receive Date: 20090624
  Receipt Date: 20090617
  Transmission Date: 20091009
  Serious: Yes (Hospitalization)
  Sender: FDA-Public Use
  Company Number: US-AVENTIS-200915357US

PATIENT
  Age: 79 Year
  Sex: Female

DRUGS (4)
  1. LOVENOX [Suspect]
     Dates: start: 20090101
  2. LOVENOX [Suspect]
     Route: 051
     Dates: start: 20090525
  3. SYNTHROID [Concomitant]
     Indication: THYROID DISORDER
     Dosage: DOSE: UNK
  4. ALOT OF OTHER MEDICATIONS [Concomitant]
     Dosage: DOSE: UNK

REACTIONS (5)
  - MALAISE [None]
  - PLATELET COUNT DECREASED [None]
  - PNEUMONIA [None]
  - PYREXIA [None]
  - WHITE BLOOD CELL COUNT DECREASED [None]
